FAERS Safety Report 4806502-8 (Version None)
Quarter: 2005Q4

REPORT INFORMATION
  Report Type: 
  Country: None (occurrence: None)
  Receive Date: 20051019
  Receipt Date: 20051019
  Transmission Date: 20060501
  Serious: Yes (Other)
  Sender: FDA-Public Use
  Company Number: None

PATIENT
  Sex: Female

DRUGS (1)
  1. FEXOFENADINE    180MG     TEVA [Suspect]
     Indication: MULTIPLE ALLERGIES
     Dosage: 180MG   EVERY MORNING  PO
     Route: 048
     Dates: start: 20051010, end: 20051016

REACTIONS (2)
  - RASH [None]
  - THERAPEUTIC RESPONSE UNEXPECTED WITH DRUG SUBSTITUTION [None]
